FAERS Safety Report 16930079 (Version 1)
Quarter: 2019Q4

REPORT INFORMATION
  Report Type: Report from Study
  Country: None (occurrence: TR)
  Receive Date: 20191017
  Receipt Date: 20191017
  Transmission Date: 20200122
  Serious: Yes (Death, Hospitalization)
  Sender: FDA-Public Use
  Company Number: TR-ABBVIE-19K-161-2967956-00

PATIENT
  Age: 62 Year
  Sex: Male
  Weight: 52 kg

DRUGS (1)
  1. DUODOPA [Suspect]
     Active Substance: CARBIDOPA\LEVODOPA
     Indication: PARKINSON^S DISEASE
     Dosage: MORNING DOSE (ML): 10.00 CONTINUOUS DOSE (ML): 4.00 EXTRA DOSE (ML): 1.50
     Route: 050
     Dates: start: 20190306

REACTIONS (1)
  - Upper respiratory tract infection [Fatal]

NARRATIVE: CASE EVENT DATE: 20191016
